FAERS Safety Report 18257728 (Version 2)
Quarter: 2020Q3

REPORT INFORMATION
  Report Type: Report from Study
  Country: US (occurrence: US)
  Receive Date: 20200911
  Receipt Date: 20200917
  Transmission Date: 20201103
  Serious: Yes (Hospitalization, Other)
  Sender: FDA-Public Use
  Company Number: US-PFIZER INC-2020348215

PATIENT
  Age: 77 Year
  Sex: Female
  Weight: 93.42 kg

DRUGS (12)
  1. SILDENAFIL CITRATE. [Suspect]
     Active Substance: SILDENAFIL CITRATE
     Dosage: UNK
  2. ORENITRAM [Suspect]
     Active Substance: TREPROSTINIL
     Dosage: UNK
     Route: 048
     Dates: start: 20200410
  3. ORENITRAM [Suspect]
     Active Substance: TREPROSTINIL
     Dosage: 0.25 MG, 2X/DAY
     Route: 048
  4. ORENITRAM [Suspect]
     Active Substance: TREPROSTINIL
     Dosage: 0.125 MG, 2X/DAY
     Route: 048
  5. ORENITRAM [Suspect]
     Active Substance: TREPROSTINIL
     Dosage: 0.75 MG, 2X/DAY (0.75 MG, Q12H (EVERY 12 HOUR),
     Route: 048
     Dates: start: 202004
  6. ORENITRAM [Suspect]
     Active Substance: TREPROSTINIL
     Dosage: UNK
     Route: 048
     Dates: start: 20200410
  7. ORENITRAM [Suspect]
     Active Substance: TREPROSTINIL
     Dosage: 0.375 MG, 3X/DAY (0.375 MG, Q12H (EVERY 12 HOUR)
     Route: 048
  8. ORENITRAM [Suspect]
     Active Substance: TREPROSTINIL
     Dosage: 0.875 MG, 2X/DAY (0.875 MG, Q12H (EVERY 12 HOUR)
     Route: 048
  9. ORENITRAM [Suspect]
     Active Substance: TREPROSTINIL
     Dosage: 0.375 MG, 2X/DAY (0.375 MG, Q12H (EVERY 12 HOUR)
     Route: 048
  10. ORENITRAM [Suspect]
     Active Substance: TREPROSTINIL
     Indication: PULMONARY ARTERIAL HYPERTENSION
     Dosage: UNK
     Route: 048
     Dates: start: 20200225
  11. ORENITRAM [Suspect]
     Active Substance: TREPROSTINIL
     Dosage: 0.625 MG, 2X/DAY (0.625 MG, Q12H (EVERY 12 HOUR)
     Route: 048
  12. OFEV [Suspect]
     Active Substance: NINTEDANIB
     Indication: IDIOPATHIC PULMONARY FIBROSIS
     Dosage: 100 MG, 2X/DAY
     Route: 048
     Dates: start: 20191216

REACTIONS (29)
  - Diarrhoea [Unknown]
  - Fungal infection [Unknown]
  - Dyspnoea [Not Recovered/Not Resolved]
  - Tachypnoea [Unknown]
  - Headache [Unknown]
  - Abdominal discomfort [Unknown]
  - Fluid overload [Unknown]
  - Wound secretion [Unknown]
  - Lung disorder [Recovered/Resolved]
  - Candida infection [Unknown]
  - Urinary tract infection [Unknown]
  - Productive cough [Unknown]
  - Heart rate decreased [Unknown]
  - Cystitis [Unknown]
  - Cyanosis [Unknown]
  - Oral candidiasis [Unknown]
  - Contusion [Unknown]
  - Oedema peripheral [Unknown]
  - Blood pressure decreased [Unknown]
  - Thrombosis [Unknown]
  - Cellulitis [Unknown]
  - Fluid retention [Recovered/Resolved]
  - Limb injury [Unknown]
  - Neuralgia [Unknown]
  - Echinococciasis [Unknown]
  - Sepsis [Unknown]
  - Drug intolerance [Unknown]
  - Cough [Unknown]
  - Peripheral coldness [Unknown]

NARRATIVE: CASE EVENT DATE: 2020
